FAERS Safety Report 4816159-8 (Version None)
Quarter: 2005Q4

REPORT INFORMATION
  Report Type: 
  Country: None (occurrence: None)
  Receive Date: 20051026
  Receipt Date: 20051011
  Transmission Date: 20060501
  Serious: Yes (Other)
  Sender: FDA-Public Use
  Company Number: 2005S1000304

PATIENT
  Sex: Female

DRUGS (1)
  1. ACITRETIN [Suspect]
     Dosage: 25 MG; QOD; PO
     Route: 048
     Dates: start: 20050810, end: 20050927

REACTIONS (2)
  - ALANINE AMINOTRANSFERASE INCREASED [None]
  - ASPARTATE AMINOTRANSFERASE INCREASED [None]
